FAERS Safety Report 13005994 (Version 2)
Quarter: 2016Q4

REPORT INFORMATION
  Report Type: Spontaneous
  Country: JP (occurrence: JP)
  Receive Date: 20161207
  Receipt Date: 20161213
  Transmission Date: 20170207
  Serious: Yes (Hospitalization, Other)
  Sender: FDA-Public Use
  Company Number: JP-TEVA-2016-JP-002825J

PATIENT
  Age: 6 Decade
  Sex: Female

DRUGS (3)
  1. WYPAX [Concomitant]
     Active Substance: LORAZEPAM
     Route: 065
  2. CERCINE [Suspect]
     Active Substance: DIAZEPAM
     Indication: PRODUCT USED FOR UNKNOWN INDICATION
     Dosage: 4 MILLIGRAM DAILY;
     Route: 048
  3. BENZALIN [Concomitant]
     Active Substance: NITRAZEPAM
     Route: 065

REACTIONS (2)
  - Electrocardiogram QT prolonged [Recovering/Resolving]
  - Hypokalaemia [Recovering/Resolving]

NARRATIVE: CASE EVENT DATE: 20161123
